FAERS Safety Report 10374722 (Version 1)
Quarter: 2014Q3

REPORT INFORMATION
  Report Type: Spontaneous
  Country: JP (occurrence: JP)
  Receive Date: 20140811
  Receipt Date: 20140811
  Transmission Date: 20150326
  Serious: Yes (Other)
  Sender: FDA-Public Use
  Company Number: JP-ELI_LILLY_AND_COMPANY-JP201407011539

PATIENT
  Age: 70 Year
  Sex: Male

DRUGS (3)
  1. GEMZAR [Suspect]
     Active Substance: GEMCITABINE HYDROCHLORIDE
     Indication: METASTASES TO LUNG
     Dosage: UNK
     Route: 042
     Dates: start: 201112
  2. CISPLATIN. [Concomitant]
     Active Substance: CISPLATIN
     Indication: METASTASES TO LUNG
     Dosage: UNK
     Dates: start: 201112
  3. ZOLEDRONIC ACID [Concomitant]
     Active Substance: ZOLEDRONIC ACID
     Indication: METASTASES TO LUNG
     Dosage: UNK, OTHER
     Dates: start: 201112

REACTIONS (12)
  - Decreased activity [Unknown]
  - Metastases to lung [Unknown]
  - Anaemia [Unknown]
  - Fall [Unknown]
  - Metastases to pleura [Unknown]
  - Lymphangiosis carcinomatosa [Unknown]
  - Device related infection [Unknown]
  - Performance status decreased [Unknown]
  - Neutrophil count decreased [Unknown]
  - Subdural haematoma [Unknown]
  - Pleural effusion [Unknown]
  - Febrile neutropenia [Unknown]

NARRATIVE: CASE EVENT DATE: 201401
